FAERS Safety Report 8041162-7 (Version None)
Quarter: 2012Q1

REPORT INFORMATION
  Report Type: 
  Country: None (occurrence: None)
  Receive Date: 20120112
  Receipt Date: 20120103
  Transmission Date: 20120608
  Serious: No
  Sender: FDA-Public Use
  Company Number: CA-JNJFOC-20110710660

PATIENT
  Sex: Female
  Weight: 56.6 kg

DRUGS (7)
  1. FOLIC ACID [Concomitant]
     Route: 048
  2. PANTOPRAZOLE SODIUM [Concomitant]
     Route: 048
  3. REMICADE [Suspect]
     Indication: PSORIATIC ARTHROPATHY
     Route: 042
     Dates: start: 20090617
  4. REMICADE [Suspect]
     Route: 042
     Dates: start: 20110717
  5. METHOTREXATE [Concomitant]
     Indication: RHEUMATOID ARTHRITIS
     Route: 048
  6. REMICADE [Suspect]
     Dosage: 16TH INFUSION
     Route: 042
     Dates: start: 20111107
  7. REMICADE [Suspect]
     Dosage: 17TH INFUSION
     Route: 042
     Dates: start: 20120103

REACTIONS (4)
  - ABNORMAL LOSS OF WEIGHT [None]
  - VAGINAL DISCHARGE [None]
  - URINARY INCONTINENCE [None]
  - FUNGAL INFECTION [None]
